FAERS Safety Report 6737034-8 (Version None)
Quarter: 2010Q2

REPORT INFORMATION
  Report Type: 
  Country: None (occurrence: None)
  Receive Date: 20100523
  Receipt Date: 20100510
  Transmission Date: 20101027
  Serious: Yes (Life-Threatening, Hospitalization, Other)
  Sender: FDA-Public Use
  Company Number: TW-BRISTOL-MYERS SQUIBB COMPANY-15098676

PATIENT
  Age: 26 Year
  Sex: Female

DRUGS (6)
  1. ARIPIPRAZOLE [Suspect]
     Indication: SCHIZOPHRENIA
  2. AMISULPRIDE [Suspect]
     Indication: SCHIZOPHRENIA
     Dosage: 1 DF:200-400MG/DAY; DCD FOR 1 MONTH AND RESTARTED.
     Dates: start: 20050101
  3. QUETIAPINE [Suspect]
     Indication: SCHIZOPHRENIA
  4. CLOZAPINE [Suspect]
     Indication: SCHIZOPHRENIA
  5. BIPERIDEN HYDROCHLORIDE TAB [Suspect]
     Dosage: FORM: IM INJ
     Route: 030
  6. LORAZEPAM [Suspect]

REACTIONS (2)
  - MYASTHENIA GRAVIS CRISIS [None]
  - PSYCHOTIC DISORDER [None]
